FAERS Safety Report 16405913 (Version 2)
Quarter: 2022Q2

REPORT INFORMATION
  Report Type: Spontaneous
  Country: CA (occurrence: CA)
  Receive Date: 20190607
  Receipt Date: 20220415
  Transmission Date: 20220721
  Serious: Yes (Death, Hospitalization)
  Sender: FDA-Public Use
  Company Number: CA-SA-2019SA153492

PATIENT
  Age: 59 Year
  Sex: Female
  Weight: 113 kg

DRUGS (11)
  1. DOCETAXEL [Suspect]
     Active Substance: DOCETAXEL
     Indication: Product used for unknown indication
     Dosage: UNK
     Route: 042
     Dates: start: 201607
  2. CYCLOPHOSPHAMIDE [Suspect]
     Active Substance: CYCLOPHOSPHAMIDE
     Indication: Neoadjuvant therapy
     Dosage: UNK
     Route: 065
     Dates: start: 201607
  3. CYCLOPHOSPHAMIDE [Suspect]
     Active Substance: CYCLOPHOSPHAMIDE
  4. EPIRUBICIN [Suspect]
     Active Substance: EPIRUBICIN
     Indication: Neoadjuvant therapy
     Dosage: UNK
     Route: 065
     Dates: start: 201607
  5. FLUOROURACIL [Suspect]
     Active Substance: FLUOROURACIL
     Indication: Product used for unknown indication
     Dosage: UNK
     Route: 065
     Dates: start: 201607
  6. ARTHROTEC [Concomitant]
     Active Substance: DICLOFENAC SODIUM\MISOPROSTOL
     Indication: Pain
     Dosage: UNK, BID
     Route: 048
     Dates: start: 200805
  7. LATANOPROST [Concomitant]
     Active Substance: LATANOPROST
     Indication: Glaucoma
     Dosage: UNK
     Route: 065
     Dates: start: 201405
  8. LATANOPROST [Concomitant]
     Active Substance: LATANOPROST
  9. QUETIAPINE [Concomitant]
     Active Substance: QUETIAPINE
     Indication: Mood altered
     Dosage: 25 MG, TID
     Route: 048
     Dates: start: 200806
  10. SERTRALINE [Concomitant]
     Active Substance: SERTRALINE HYDROCHLORIDE
     Indication: Depression
     Dosage: 200 MG, QD
     Route: 048
     Dates: start: 200805
  11. SYNTHROID [Concomitant]
     Active Substance: LEVOTHYROXINE SODIUM
     Indication: Hypothyroidism
     Dosage: UNK UNK, QD
     Route: 048
     Dates: start: 200805

REACTIONS (6)
  - Neoplasm progression [Fatal]
  - Fall [Unknown]
  - Headache [Unknown]
  - Muscular weakness [Unknown]
  - Nausea [Unknown]
  - Pain [Unknown]
